FAERS Safety Report 16456489 (Version 1)
Quarter: 2019Q2

REPORT INFORMATION
  Report Type: Spontaneous
  Country: FR (occurrence: FR)
  Receive Date: 20190620
  Receipt Date: 20190620
  Transmission Date: 20190711
  Serious: Yes (Other)
  Sender: FDA-Public Use
  Company Number: FR-PFIZER INC-2019260424

PATIENT
  Sex: Male

DRUGS (16)
  1. TERCIAN [Suspect]
     Active Substance: CYAMEMAZINE
     Indication: PRODUCT ADMINISTRATION ERROR
     Dosage: 25 MG
     Route: 048
     Dates: start: 20190510, end: 20190510
  2. BIOTINE [Suspect]
     Active Substance: LACTOPEROXIDASE BOVINE\LYSOZYME HYDROCHLORIDE
     Indication: PRODUCT ADMINISTRATION ERROR
     Dosage: UNK
     Route: 048
  3. OLANZAPINE. [Suspect]
     Active Substance: OLANZAPINE
     Indication: PRODUCT ADMINISTRATION ERROR
     Dosage: 10 MG
     Route: 048
     Dates: start: 20190510, end: 20190510
  4. PYRIDOXINE [Suspect]
     Active Substance: PYRIDOXINE
     Indication: PRODUCT ADMINISTRATION ERROR
     Dosage: UNK
     Route: 048
  5. AMIODARONE HCL [Suspect]
     Active Substance: AMIODARONE HYDROCHLORIDE
     Indication: PRODUCT ADMINISTRATION ERROR
     Dosage: 200 MG
     Route: 048
     Dates: start: 20190510, end: 20190510
  6. SPASFON (PHLOROGLUCINOL) [Suspect]
     Active Substance: PHLOROGLUCINOL
     Indication: PRODUCT ADMINISTRATION ERROR
     Dosage: UNK
     Route: 048
     Dates: start: 20190510, end: 20190510
  7. SULFARLEM [Suspect]
     Active Substance: ANETHOLTRITHION
     Indication: PRODUCT ADMINISTRATION ERROR
     Dosage: 50
     Route: 048
     Dates: start: 20190510, end: 20190510
  8. CHOLINE [Suspect]
     Active Substance: CHOLINE
     Indication: PRODUCT ADMINISTRATION ERROR
     Dosage: UNK
     Route: 048
  9. XANAX [Suspect]
     Active Substance: ALPRAZOLAM
     Indication: PRODUCT ADMINISTRATION ERROR
     Dosage: 0.25 MG
     Route: 048
     Dates: start: 20190510, end: 20190510
  10. VITAMINE B1 [Suspect]
     Active Substance: THIAMINE HYDROCHLORIDE
     Indication: PRODUCT ADMINISTRATION ERROR
     Dosage: UNK
     Route: 048
  11. ARTANE [Suspect]
     Active Substance: TRIHEXYPHENIDYL HYDROCHLORIDE
     Indication: PRODUCT ADMINISTRATION ERROR
     Dosage: 2 MG
     Route: 048
     Dates: start: 20190510, end: 20190510
  12. CYANOCOBALAMINE [Suspect]
     Active Substance: CYANOCOBALAMIN
     Indication: PRODUCT ADMINISTRATION ERROR
     Dosage: UNK
     Route: 048
  13. PANTOTHENATE DE CALCIUM [Suspect]
     Active Substance: CALCIUM PANTOTHENATE
     Indication: PRODUCT ADMINISTRATION ERROR
     Dosage: UNK
     Route: 048
  14. NICOTINAMIDE [Suspect]
     Active Substance: NIACINAMIDE
     Indication: PRODUCT ADMINISTRATION ERROR
     Dosage: UNK
     Route: 048
  15. FOLIC ACID. [Suspect]
     Active Substance: FOLIC ACID
     Indication: PRODUCT ADMINISTRATION ERROR
     Dosage: UNK
     Route: 048
  16. DEPAKINE [Suspect]
     Active Substance: VALPROATE SODIUM
     Indication: PRODUCT ADMINISTRATION ERROR
     Dosage: 500 MG
     Route: 048
     Dates: start: 20190510, end: 20190510

REACTIONS (6)
  - Wrong patient received product [Recovered/Resolved]
  - Circumstance or information capable of leading to medication error [Recovered/Resolved]
  - Hypotension [Recovered/Resolved]
  - Tachycardia [Recovered/Resolved]
  - Haemodynamic instability [Recovered/Resolved]
  - Product administration error [Recovered/Resolved]

NARRATIVE: CASE EVENT DATE: 20190510
